FAERS Safety Report 6129451-4 (Version None)
Quarter: 2009Q1

REPORT INFORMATION
  Report Type: 
  Country: None (occurrence: None)
  Receive Date: 20090324
  Receipt Date: 20090312
  Transmission Date: 20090719
  Serious: Yes (Hospitalization)
  Sender: FDA-Public Use
  Company Number: AT-PFIZER INC-2009182120

PATIENT

DRUGS (2)
  1. DALACIN [Suspect]
     Indication: ERYSIPELAS
     Dosage: FREQUENCY: 2X2DAY, EVERY DAY;
     Route: 048
     Dates: start: 20090215, end: 20090218
  2. DALACIN [Suspect]
     Dosage: 600 MG, 2X/DAY
     Route: 042
     Dates: start: 20090218, end: 20090221

REACTIONS (1)
  - DRUG ERUPTION [None]
